FAERS Safety Report 5005277-X (Version None)
Quarter: 2006Q2

REPORT INFORMATION
  Report Type: 
  Country: None (occurrence: None)
  Receive Date: 20060518
  Receipt Date: 20060515
  Transmission Date: 20061013
  Serious: Yes (Other)
  Sender: FDA-Public Use
  Company Number: CA-GLAXOSMITHKLINE-A0605921A

PATIENT
  Age: 13 Year
  Sex: Female

DRUGS (1)
  1. MALARONE [Suspect]
     Indication: DRUG USE FOR UNKNOWN INDICATION
     Dosage: 350MG PER DAY
     Route: 048

REACTIONS (5)
  - ANOREXIA [None]
  - APATHY [None]
  - DEPRESSION [None]
  - HEADACHE [None]
  - PERSONALITY CHANGE [None]
